FAERS Safety Report 10329548 (Version 1)
Quarter: 2014Q3

REPORT INFORMATION
  Report Type: Spontaneous
  Country: US (occurrence: US)
  Receive Date: 20140721
  Receipt Date: 20140721
  Transmission Date: 20150326
  Serious: No
  Sender: FDA-Public Use
  Company Number: US-009507513-1407USA007796

PATIENT
  Age: 83 Year
  Sex: Male

DRUGS (2)
  1. PROVENTIL [Suspect]
     Active Substance: ALBUTEROL
     Dosage: 1 STANDARD DOSE OF 6.7 / ONE PUFF EVERY 4 HOURS
     Route: 055
     Dates: start: 20140714
  2. ASMANEX HFA [Concomitant]
     Active Substance: MOMETASONE FUROATE
     Dosage: ONE PUFF TWICE A DAY

REACTIONS (2)
  - Product container issue [Unknown]
  - Dyspnoea [Unknown]

NARRATIVE: CASE EVENT DATE: 20140716
